FAERS Safety Report 19220310 (Version 1)
Quarter: 2021Q2

REPORT INFORMATION
  Report Type: Spontaneous
  Country: PT (occurrence: PT)
  Receive Date: 20210506
  Receipt Date: 20210506
  Transmission Date: 20210717
  Serious: Yes (Other)
  Sender: FDA-Public Use
  Company Number: PT-ORGANON-O2104PRT002438

PATIENT
  Age: 21 Year
  Sex: Female
  Weight: 67 kg

DRUGS (1)
  1. IMPLANON NXT [Suspect]
     Active Substance: ETONOGESTREL
     Indication: CONTRACEPTION
     Dosage: UNK
     Route: 058
     Dates: start: 20191213, end: 20210407

REACTIONS (8)
  - Heavy menstrual bleeding [Unknown]
  - Weight increased [Unknown]
  - Affect lability [Unknown]
  - Headache [Unknown]
  - Acne [Unknown]
  - Dysmenorrhoea [Unknown]
  - Vaginal haemorrhage [Unknown]
  - Skin odour abnormal [Unknown]

NARRATIVE: CASE EVENT DATE: 20200101
